FAERS Safety Report 7386059-0 (Version None)
Quarter: 2011Q1

REPORT INFORMATION
  Report Type: 
  Country: None (occurrence: None)
  Receive Date: 20110331
  Receipt Date: 20110324
  Transmission Date: 20110831
  Serious: Yes (Life-Threatening, Hospitalization)
  Sender: FDA-Public Use
  Company Number: FR-AMGEN-FRASP2011008450

PATIENT
  Age: 43 Year
  Sex: Male

DRUGS (3)
  1. CISPLATIN [Concomitant]
     Dosage: 34.5 MG, PER CHEMO REGIM
     Dates: start: 20101025
  2. NEULASTA [Suspect]
     Indication: CHEMOTHERAPY
     Dosage: 6 MG, UNK
     Route: 058
     Dates: start: 20101029
  3. ETOPOSIDE [Concomitant]
     Dosage: 173 MG, PER CHEMO REGIM
     Dates: start: 20101025

REACTIONS (2)
  - NEUTROPENIA [None]
  - DRUG EFFECT DELAYED [None]
